FAERS Safety Report 12201126 (Version 1)
Quarter: 2016Q1

REPORT INFORMATION
  Report Type: Spontaneous
  Country: US (occurrence: US)
  Receive Date: 20160322
  Receipt Date: 20160322
  Transmission Date: 20160526
  Serious: No
  Sender: FDA-Public Use
  Company Number: US-SA-2015SA091272

PATIENT
  Sex: Male

DRUGS (1)
  1. NASACORT ALLERGY 24HR [Suspect]
     Active Substance: TRIAMCINOLONE ACETONIDE
     Indication: SEASONAL ALLERGY
     Dosage: PRODUCT START DATE 3 DAYS AGO?FORM- SPRAY
     Route: 045
     Dates: end: 20150618

REACTIONS (2)
  - Anosmia [Unknown]
  - Ageusia [Unknown]
